FAERS Safety Report 14966928 (Version 2)
Quarter: 2018Q2

REPORT INFORMATION
  Report Type: Spontaneous
  Country: FR (occurrence: FR)
  Receive Date: 20180604
  Receipt Date: 20180606
  Transmission Date: 20180711
  Serious: Yes (Hospitalization)
  Sender: FDA-Public Use
  Company Number: FR-TEVA-2018-FR-900389

PATIENT
  Age: 62 Year
  Sex: Male
  Weight: 122 kg

DRUGS (13)
  1. DIPROSONE [Concomitant]
     Active Substance: BETAMETHASONE DIPROPIONATE
     Route: 065
  2. ACTISKENAN [Concomitant]
     Active Substance: MORPHINE SULFATE
     Route: 065
  3. LANSOPRAZOLE. [Suspect]
     Active Substance: LANSOPRAZOLE
     Indication: PRODUCT USED FOR UNKNOWN INDICATION
     Route: 048
     Dates: start: 20180213, end: 201803
  4. LOVENOX [Concomitant]
     Active Substance: ENOXAPARIN SODIUM
     Route: 065
  5. ACUPAN [Concomitant]
     Active Substance: NEFOPAM HYDROCHLORIDE
     Route: 065
  6. LERCAPRESS 20 MG/10 MG, COMPRIME PELLICULE [Concomitant]
     Route: 065
  7. ROCEPHINE [Suspect]
     Active Substance: CEFTRIAXONE SODIUM
     Indication: URINARY TRACT INFECTION
     Dosage: 1 GRAM DAILY;
     Route: 058
     Dates: start: 20180312, end: 20180319
  8. VENLAFAXINE [Concomitant]
     Active Substance: VENLAFAXINE HYDROCHLORIDE
     Route: 065
  9. BACLOFENE [Concomitant]
     Active Substance: BACLOFEN
     Route: 065
  10. IMOVANE [Concomitant]
     Active Substance: ZOPICLONE
     Route: 065
  11. SERESTA 10 MG, COMPRIM? [Concomitant]
     Active Substance: OXAZEPAM
     Route: 065
  12. SKENAN L.P. 10 MG, MICROGRANULES ? LIB?RATION PROLONG?E EN G?LULE [Concomitant]
     Route: 065
  13. PRINCI B, COMPRIM? PELLICUL? [Concomitant]
     Route: 065

REACTIONS (2)
  - Thrombocytopenia [Recovered/Resolved]
  - Agranulocytosis [Recovered/Resolved]

NARRATIVE: CASE EVENT DATE: 20180315
